FAERS Safety Report 26132164 (Version 1)
Quarter: 2025Q4

REPORT INFORMATION
  Report Type: Spontaneous
  Country: IN (occurrence: IN)
  Receive Date: 20251208
  Receipt Date: 20251208
  Transmission Date: 20260117
  Serious: Yes (Hospitalization, Other)
  Sender: NOVARTIS
  Company Number: IN-002147023-NVSC2025IN186616

PATIENT
  Age: 49 Year
  Sex: Female
  Weight: 88 kg

DRUGS (3)
  1. OXCARBAZEPINE [Suspect]
     Active Substance: OXCARBAZEPINE
     Indication: Bipolar disorder
     Dosage: 600 MG, QD
     Route: 065
  2. OXCARBAZEPINE [Suspect]
     Active Substance: OXCARBAZEPINE
     Dosage: 1500 MG, QD (TITRATED TO 1500 MG/ DAY OVER TWO WEEKS)
     Route: 065
  3. THYROXINE [Concomitant]
     Active Substance: LEVOTHYROXINE
     Indication: Hypothyroidism
     Dosage: 75 UG, QD
     Route: 065

REACTIONS (7)
  - Pancytopenia [Recovered/Resolved]
  - Asthenia [Unknown]
  - Fatigue [Unknown]
  - Dizziness [Unknown]
  - Pyrexia [Unknown]
  - Hyponatraemia [Recovered/Resolved]
  - Off label use [Unknown]
